FAERS Safety Report 23512876 (Version 1)
Quarter: 2024Q1

REPORT INFORMATION
  Report Type: Spontaneous
  Country: FR (occurrence: FR)
  Receive Date: 20240212
  Receipt Date: 20240212
  Transmission Date: 20240409
  Serious: Yes (Hospitalization)
  Sender: FDA-Public Use
  Company Number: None

PATIENT
  Age: 50 Year
  Sex: Female
  Weight: 87 kg

DRUGS (4)
  1. DIAZEPAM [Suspect]
     Active Substance: DIAZEPAM
     Indication: Intentional overdose
     Dosage: ; IN TOTAL
     Route: 050
     Dates: start: 20231229, end: 20231229
  2. OLANZAPINE [Suspect]
     Active Substance: OLANZAPINE
     Indication: Intentional overdose
     Dosage: NP
     Route: 050
     Dates: start: 20231229, end: 20231229
  3. ZOPICLONE [Suspect]
     Active Substance: ZOPICLONE
     Indication: Intentional overdose
     Dosage: NP
     Route: 050
     Dates: start: 20231229, end: 20231229
  4. ALCOHOL [Suspect]
     Active Substance: ALCOHOL
     Indication: Alcohol poisoning
     Dosage: NP
     Route: 050
     Dates: start: 20231229, end: 20231229

REACTIONS (4)
  - Coma [Recovered/Resolved]
  - Hypothermia [Recovered/Resolved]
  - Poisoning deliberate [Recovered/Resolved]
  - Miosis [Recovered/Resolved]

NARRATIVE: CASE EVENT DATE: 20231229
